APPROVED DRUG PRODUCT: ERYTHRO-STATIN
Active Ingredient: ERYTHROMYCIN
Strength: 2%
Dosage Form/Route: SOLUTION;TOPICAL
Application: A064101 | Product #001
Applicant: EPIC PHARMA LLC
Approved: Oct 22, 1996 | RLD: No | RS: No | Type: DISCN